FAERS Safety Report 9162011 (Version 5)
Quarter: 2014Q2

REPORT INFORMATION
  Report Type: Spontaneous
  Country: TR (occurrence: TR)
  Receive Date: 20130314
  Receipt Date: 20140508
  Transmission Date: 20141212
  Serious: Yes (Hospitalization)
  Sender: FDA-Public Use
  Company Number: TR-VERTEX PHARMACEUTICALS INC.-2013-003488

PATIENT
  Age: 48 Year
  Sex: Male

DRUGS (3)
  1. INCIVO [Suspect]
     Indication: CHRONIC HEPATITIS C
     Dosage: THERAPY COMPLETED
     Route: 048
  2. RIBAVIRIN [Suspect]
     Indication: CHRONIC HEPATITIS C
     Dosage: UNK
  3. PEGINTERFERON ALFA [Suspect]
     Indication: CHRONIC HEPATITIS C
     Dosage: UNK

REACTIONS (6)
  - Leukopenia [Unknown]
  - Rash maculo-papular [Recovered/Resolved]
  - Asthenia [Not Recovered/Not Resolved]
  - Diarrhoea [Unknown]
  - Vomiting [Recovered/Resolved]
  - Nausea [Recovered/Resolved]
